FAERS Safety Report 9541825 (Version 1)
Quarter: 2013Q3

REPORT INFORMATION
  Report Type: Spontaneous
  Country: US (occurrence: US)
  Receive Date: 20130923
  Receipt Date: 20130923
  Transmission Date: 20140515
  Serious: Yes (Hospitalization)
  Sender: FDA-Public Use
  Company Number: PHEH2013US019726

PATIENT
  Sex: Female

DRUGS (1)
  1. FANAPT [Suspect]
     Dosage: 8 MG, BID

REACTIONS (1)
  - Bipolar I disorder [Unknown]
